FAERS Safety Report 21058169 (Version 1)
Quarter: 2022Q3

REPORT INFORMATION
  Report Type: Spontaneous
  Country: CA (occurrence: CA)
  Receive Date: 20220708
  Receipt Date: 20220708
  Transmission Date: 20221027
  Serious: Yes (Death)
  Sender: FDA-Public Use
  Company Number: CA-PFIZER INC-2019515972

PATIENT
  Age: 76 Year
  Sex: Female

DRUGS (9)
  1. REVATIO [Suspect]
     Active Substance: SILDENAFIL CITRATE
     Indication: Pulmonary hypertension
     Dosage: 20 MG, UNK
     Route: 048
     Dates: start: 20191121
  2. UPTRAVI [Suspect]
     Active Substance: SELEXIPAG
     Dosage: UNK
  3. UPTRAVI [Suspect]
     Active Substance: SELEXIPAG
     Dosage: 800 UG, 2X/DAY
  4. EFFEXOR [Concomitant]
     Active Substance: VENLAFAXINE HYDROCHLORIDE
     Dosage: UNK
  5. ABILIFY [Concomitant]
     Active Substance: ARIPIPRAZOLE
     Dosage: UNK
  6. NEXIUM [Concomitant]
     Active Substance: ESOMEPRAZOLE MAGNESIUM
     Dosage: UNK
  7. PROLIA [Concomitant]
     Active Substance: DENOSUMAB
     Dosage: UNK
  8. AMBRISENTAN [Concomitant]
     Active Substance: AMBRISENTAN
     Dosage: UNK
  9. TYLENOL WITH CODEINE [Concomitant]
     Active Substance: ACETAMINOPHEN\CODEINE PHOSPHATE
     Dosage: UNK

REACTIONS (24)
  - Death [Fatal]
  - Malaise [Not Recovered/Not Resolved]
  - Abdominal discomfort [Not Recovered/Not Resolved]
  - Mucous stools [Not Recovered/Not Resolved]
  - Fatigue [Recovered/Resolved]
  - Headache [Not Recovered/Not Resolved]
  - Bowel movement irregularity [Not Recovered/Not Resolved]
  - Diarrhoea [Unknown]
  - Dysphonia [Not Recovered/Not Resolved]
  - Pain in jaw [Unknown]
  - Muscular weakness [Unknown]
  - Myalgia [Unknown]
  - Cough [Not Recovered/Not Resolved]
  - Abdominal discomfort [Unknown]
  - Dehydration [Unknown]
  - Dyspnoea [Not Recovered/Not Resolved]
  - Wheezing [Not Recovered/Not Resolved]
  - Condition aggravated [Not Recovered/Not Resolved]
  - Asthenia [Not Recovered/Not Resolved]
  - Intentional product misuse [Unknown]
  - Chills [Not Recovered/Not Resolved]
  - Back pain [Not Recovered/Not Resolved]
  - Nasal congestion [Not Recovered/Not Resolved]
  - Temperature intolerance [Unknown]

NARRATIVE: CASE EVENT DATE: 20191201
